FAERS Safety Report 8895041 (Version 1)
Quarter: 2012Q4

REPORT INFORMATION
  Report Type: 
  Country: US (occurrence: US)
  Receive Date: 20121108
  Receipt Date: 20121108
  Transmission Date: 20130627
  Serious: Yes (Other)
  Sender: FDA-Public Use
  Company Number: US-PERRIGO-12US009500

PATIENT
  Age: 53 Year
  Sex: Female
  Weight: 51.7 kg

DRUGS (1)
  1. IBUPROFEN 200 MG 604 [Suspect]
     Indication: INFLAMMATION
     Dosage: 400 mg, tid
     Route: 048
     Dates: start: 20120730

REACTIONS (5)
  - Gait disturbance [Unknown]
  - Cyanosis [Unknown]
  - Paraesthesia [Unknown]
  - Burning sensation [Unknown]
  - Incorrect drug administration duration [Unknown]
